FAERS Safety Report 5818670-X (Version None)
Quarter: 2008Q3

REPORT INFORMATION
  Report Type: 
  Country: None (occurrence: None)
  Receive Date: 20080717
  Receipt Date: 20080717
  Transmission Date: 20090109
  Serious: No
  Sender: FDA-Public Use
  Company Number: None

PATIENT
  Sex: Male
  Weight: 68 kg

DRUGS (6)
  1. BEVACIZUMAB (RHUMAB VEGF) [Suspect]
     Dosage: 675 MG
  2. CAMPTOSAR [Suspect]
     Dosage: 432 MG
  3. ELOXATIN [Suspect]
     Dosage: 234 MG
  4. ACCUPRIL [Concomitant]
  5. NORVASC [Concomitant]
  6. QUINAPRIL [Concomitant]

REACTIONS (4)
  - ANOREXIA [None]
  - DRUG TOXICITY [None]
  - DYSPNOEA EXERTIONAL [None]
  - FATIGUE [None]
